FAERS Safety Report 21286023 (Version 2)
Quarter: 2022Q3

REPORT INFORMATION
  Report Type: Spontaneous
  Country: IN (occurrence: IN)
  Receive Date: 20220902
  Receipt Date: 20220914
  Transmission Date: 20221027
  Serious: Yes (Hospitalization, Other)
  Sender: FDA-Public Use
  Company Number: IN-Accord-275792

PATIENT
  Age: 72 Year
  Sex: Male

DRUGS (2)
  1. METHOTREXATE [Suspect]
     Active Substance: METHOTREXATE
     Indication: Arthritis reactive
     Dates: start: 201708, end: 201710
  2. PREDNISONE [Concomitant]
     Active Substance: PREDNISONE
     Indication: Arthritis reactive
     Dosage: TAPERED RAPIDLY
     Dates: start: 201708, end: 2017

REACTIONS (3)
  - Hypersensitivity pneumonitis [Recovered/Resolved]
  - Hypercalcaemia [Recovered/Resolved]
  - Blood creatinine increased [Recovered/Resolved]

NARRATIVE: CASE EVENT DATE: 20171001
